FAERS Safety Report 9896430 (Version 1)
Quarter: 2014Q1

REPORT INFORMATION
  Report Type: Spontaneous
  Country: US (occurrence: US)
  Receive Date: 20140213
  Receipt Date: 20140213
  Transmission Date: 20141002
  Serious: No
  Sender: FDA-Public Use
  Company Number: US-BRISTOL-MYERS SQUIBB COMPANY-19890078

PATIENT
  Age: 63 Year
  Sex: Female
  Weight: 79.36 kg

DRUGS (9)
  1. ORENCIA FOR INJ [Suspect]
  2. ATENOLOL [Concomitant]
  3. VYTORIN [Concomitant]
  4. PLAQUENIL [Concomitant]
  5. PREDNISONE [Concomitant]
  6. VITAMINS [Concomitant]
  7. METHOTREXATE [Concomitant]
  8. EZETIMIBE + SIMVASTATIN [Concomitant]
  9. IBANDRONATE [Concomitant]

REACTIONS (1)
  - Nasopharyngitis [Unknown]
